FAERS Safety Report 12485020 (Version 1)
Quarter: 2016Q2

REPORT INFORMATION
  Report Type: Spontaneous
  Country: GB (occurrence: GB)
  Receive Date: 20160621
  Receipt Date: 20160621
  Transmission Date: 20160815
  Serious: Yes (Other)
  Sender: FDA-Public Use
  Company Number: GB-GLAXOSMITHKLINE-B0359598A

PATIENT
  Age: 14 Year
  Sex: Female

DRUGS (6)
  1. CIPRAMIL [Concomitant]
     Active Substance: CITALOPRAM HYDROBROMIDE
     Indication: PRODUCT USED FOR UNKNOWN INDICATION
     Dosage: UNK
     Route: 065
     Dates: start: 20041021
  2. PAROXETINE. [Suspect]
     Active Substance: PAROXETINE
     Indication: PRODUCT USED FOR UNKNOWN INDICATION
     Dosage: UNK
     Route: 048
  3. EFFEXOR [Concomitant]
     Active Substance: VENLAFAXINE HYDROCHLORIDE
     Indication: PRODUCT USED FOR UNKNOWN INDICATION
     Dates: start: 20041116
  4. SEROXAT [Suspect]
     Active Substance: PAROXETINE HYDROCHLORIDE
     Indication: DEPRESSION
     Dosage: UNK
     Route: 065
     Dates: start: 19980513, end: 200409
  5. TRIMIPRAMINE [Concomitant]
     Active Substance: TRIMIPRAMINE
     Indication: PRODUCT USED FOR UNKNOWN INDICATION
     Dosage: UNK
     Dates: start: 19981030
  6. PAROXETINE. [Suspect]
     Active Substance: PAROXETINE
     Indication: PRODUCT USED FOR UNKNOWN INDICATION
     Dosage: UNK

REACTIONS (31)
  - Photophobia [Unknown]
  - Feeling abnormal [Unknown]
  - Dizziness [Unknown]
  - Anxiety [Unknown]
  - Obsessive-compulsive disorder [Unknown]
  - Decreased appetite [Unknown]
  - Aggression [Unknown]
  - Insomnia [Unknown]
  - Memory impairment [Unknown]
  - Depression [Unknown]
  - Hyperhidrosis [Unknown]
  - Lethargy [Unknown]
  - Vertigo [Unknown]
  - Nausea [Unknown]
  - Mood swings [Unknown]
  - Fatigue [Unknown]
  - Seizure [Unknown]
  - Drug withdrawal syndrome [Unknown]
  - Tremor [Unknown]
  - Paraesthesia [Unknown]
  - Agitation [Unknown]
  - Disturbance in attention [Unknown]
  - Scar [Unknown]
  - Somnolence [Unknown]
  - Suicidal behaviour [Unknown]
  - Tearfulness [Unknown]
  - Headache [Unknown]
  - Influenza [Unknown]
  - Rash [Unknown]
  - Vomiting [Unknown]
  - Pyrexia [Unknown]

NARRATIVE: CASE EVENT DATE: 19990108
